FAERS Safety Report 17316018 (Version 7)
Quarter: 2020Q2

REPORT INFORMATION
  Report Type: Report from Study
  Country: JP (occurrence: JP)
  Receive Date: 20200124
  Receipt Date: 20200513
  Transmission Date: 20200713
  Serious: Yes (Hospitalization)
  Sender: FDA-Public Use
  Company Number: JP-ROCHE-2530936

PATIENT
  Age: 66 Year
  Sex: Male
  Weight: 65.3 kg

DRUGS (7)
  1. TIOTROPIUM BROMIDE [Concomitant]
     Active Substance: TIOTROPIUM BROMIDE
     Indication: CHRONIC OBSTRUCTIVE PULMONARY DISEASE
  2. BEZAFIBRATE [Concomitant]
     Active Substance: BEZAFIBRATE
     Indication: HYPERLIPIDAEMIA
     Route: 065
     Dates: start: 20170302
  3. CARBOPLATIN. [Suspect]
     Active Substance: CARBOPLATIN
     Indication: NON-SMALL CELL LUNG CANCER
     Dosage: AREA UNDER THE CONCENTRATION CURVE (AUC) 6 MILLIGRAMS PER MILLILITER PER MINUTE?DATE OF MOST RECENT
     Route: 042
     Dates: start: 20170203
  4. NAB-PACLITAXEL [Suspect]
     Active Substance: PACLITAXEL
     Indication: NON-SMALL CELL LUNG CANCER
     Dosage: DOSE OF LAST NAB-PACLITAXEL ADMINISTERED 160 MG?DATE OF MOST RECENT DOSE OF NAB-PACLITAXEL: 08/MAY/2
     Route: 042
     Dates: start: 20170203
  5. ALLOPURINOL. [Concomitant]
     Active Substance: ALLOPURINOL
     Indication: HYPERURICAEMIA
     Route: 065
     Dates: start: 201701
  6. AZACITIDINE. [Concomitant]
     Active Substance: AZACITIDINE
     Route: 065
     Dates: start: 20200129
  7. ATEZOLIZUMAB. [Suspect]
     Active Substance: ATEZOLIZUMAB
     Indication: NON-SMALL CELL LUNG CANCER
     Dosage: DATE OF MOST RECENT DOSE : 10/AUG/2017
     Route: 042
     Dates: start: 20170203

REACTIONS (1)
  - Myelodysplastic syndrome [Not Recovered/Not Resolved]

NARRATIVE: CASE EVENT DATE: 20191224
